FAERS Safety Report 21698144 (Version 1)
Quarter: 2022Q4

REPORT INFORMATION
  Report Type: Spontaneous
  Country: US (occurrence: US)
  Receive Date: 20221208
  Receipt Date: 20221208
  Transmission Date: 20230113
  Serious: No
  Sender: FDA-Public Use
  Company Number: US-EyePoint Pharmaceuticals, Inc.-US-EYP-22-00171

PATIENT
  Sex: Female

DRUGS (3)
  1. YUTIQ [Suspect]
     Active Substance: FLUOCINOLONE ACETONIDE
     Indication: Product used for unknown indication
     Dosage: RIGHT EYE/OD
     Route: 031
     Dates: start: 20220810, end: 20220810
  2. KENALOG [Concomitant]
     Active Substance: TRIAMCINOLONE ACETONIDE
     Indication: Product used for unknown indication
     Dosage: RIGHT EYE/OD
     Route: 031
     Dates: start: 20151015, end: 20151015
  3. OZURDEX [Concomitant]
     Active Substance: DEXAMETHASONE
     Indication: Product used for unknown indication
     Dosage: RIGHT EYE/OD
     Route: 031
     Dates: start: 20220412, end: 20220412

REACTIONS (3)
  - Drug delivery system issue [Unknown]
  - Product dose omission issue [Unknown]
  - No adverse event [Unknown]
